FAERS Safety Report 13535308 (Version 1)
Quarter: 2017Q2

REPORT INFORMATION
  Report Type: Spontaneous
  Country: US (occurrence: US)
  Receive Date: 20170511
  Receipt Date: 20170511
  Transmission Date: 20170830
  Serious: Yes (Hospitalization, Other)
  Sender: FDA-Public Use
  Company Number: US-TORRENT-00001498

PATIENT
  Age: 69 Year
  Sex: Female

DRUGS (2)
  1. ATENOLOL. [Suspect]
     Active Substance: ATENOLOL
  2. AMLODIPINE/AMLODIPINE BESYLATE [Suspect]
     Active Substance: AMLODIPINE BESYLATE

REACTIONS (10)
  - Cardiac arrest [Unknown]
  - Hypokalaemia [Unknown]
  - Cardioversion [Unknown]
  - Vomiting [Recovered/Resolved]
  - Somnolence [Unknown]
  - Shock [Recovered/Resolved]
  - Hypotension [Recovered/Resolved]
  - Intentional overdose [Recovered/Resolved]
  - Ventricular fibrillation [Unknown]
  - Suicide attempt [Unknown]
